FAERS Safety Report 5717902-6 (Version None)
Quarter: 2008Q2

REPORT INFORMATION
  Report Type: 
  Country: None (occurrence: None)
  Receive Date: 20080425
  Receipt Date: 20080221
  Transmission Date: 20081010
  Serious: No
  Sender: FDA-Public Use
  Company Number: US-ABBOTT-08P-163-0439392-00

PATIENT
  Sex: Female
  Weight: 62.652 kg

DRUGS (3)
  1. ERYTHROCIN BASE TABLETS [Suspect]
     Indication: PROPHYLAXIS
     Dosage: ONE TIME DOSE
     Route: 048
     Dates: start: 20080215, end: 20080215
  2. PROTONICS [Concomitant]
     Indication: GASTROOESOPHAGEAL REFLUX DISEASE
     Route: 048
  3. AMLODIPINE [Concomitant]
     Indication: HYPERTENSION
     Route: 048

REACTIONS (5)
  - ABDOMINAL DISTENSION [None]
  - ABDOMINAL PAIN [None]
  - CHEST PAIN [None]
  - NAUSEA [None]
  - PRURITUS [None]
